FAERS Safety Report 9279484 (Version 3)
Quarter: 2013Q2

REPORT INFORMATION
  Report Type: Spontaneous
  Country: ES (occurrence: ES)
  Receive Date: 20130508
  Receipt Date: 20130612
  Transmission Date: 20140414
  Serious: Yes (Hospitalization, Other)
  Sender: FDA-Public Use
  Company Number: ES-009507513-1304ESP017541

PATIENT
  Age: 74 Year
  Sex: Male
  Weight: 90 kg

DRUGS (9)
  1. VYTORIN 10 MG/20 MG COMPRIMIDOS [Suspect]
     Dosage: UNK
     Route: 065
     Dates: start: 20120525
  2. RONAME [Suspect]
     Dosage: 2 MG, QD
     Route: 048
     Dates: start: 20120626
  3. TRAJENTA [Suspect]
     Dosage: UNK
     Route: 065
     Dates: start: 20120417
  4. PARAPRES PLUS [Suspect]
     Dosage: UNK
     Dates: start: 20120127
  5. CELEBREX [Suspect]
     Dosage: UNK
     Dates: start: 20120517
  6. OMEPRAZOLE [Suspect]
     Dosage: UNK
     Route: 065
     Dates: start: 20120417
  7. NOLOTIL [Concomitant]
     Dosage: PRN
  8. ADIRO [Concomitant]
     Dosage: UNK
  9. PLANTAGO SEED [Concomitant]
     Dosage: UNK, PRN

REACTIONS (2)
  - Hepatitis cholestatic [Not Recovered/Not Resolved]
  - Abdominal pain [Recovered/Resolved]
